FAERS Safety Report 6676274-3 (Version None)
Quarter: 2010Q1

REPORT INFORMATION
  Report Type: 
  Country: None (occurrence: None)
  Receive Date: 20100331
  Receipt Date: 20090720
  Transmission Date: 20100710
  Serious: Yes (Disabling, Other)
  Sender: FDA-Public Use
  Company Number: 2009200270

PATIENT
  Age: 60 Year
  Sex: Female
  Weight: 63.5 kg

DRUGS (8)
  1. SUTENT [Suspect]
     Indication: RENAL CANCER
     Dosage: 12.5 MG, 4X/DAY
     Dates: start: 20070101
  2. DIOVAN HCT [Concomitant]
  3. SERTRALINE [Concomitant]
  4. MIRAPEX [Concomitant]
  5. LAMICTAL [Concomitant]
  6. LUNESTA [Concomitant]
  7. CARBOPLATIN [Concomitant]
  8. TAXOL [Concomitant]

REACTIONS (5)
  - FATIGUE [None]
  - METASTASES TO SPINE [None]
  - NEUTROPHIL COUNT DECREASED [None]
  - PALMAR-PLANTAR ERYTHRODYSAESTHESIA SYNDROME [None]
  - WHITE BLOOD CELL COUNT DECREASED [None]
